FAERS Safety Report 4320187-9 (Version None)
Quarter: 2004Q1

REPORT INFORMATION
  Report Type: 
  Country: None (occurrence: None)
  Receive Date: 20040317
  Receipt Date: 20040218
  Transmission Date: 20041129
  Serious: Yes (Death, Hospitalization)
  Sender: FDA-Public Use
  Company Number: NSADSS2003016275

PATIENT
  Age: 52 Year
  Sex: Male
  Weight: 144.6975 kg

DRUGS (10)
  1. REMICADE [Suspect]
     Dosage: 1 IN 1 AS NECESSARY, INTRAVENOUS DRIP
     Route: 041
     Dates: start: 20001101, end: 20001101
  2. LIBRAX [Concomitant]
  3. LOMOTIL (DIPHENOXYLATE W/ATROPINE) TABLETS [Concomitant]
  4. ASACOL [Concomitant]
  5. FOLIC ACID [Concomitant]
  6. PREVACID [Concomitant]
  7. ELAVIL [Concomitant]
  8. LASIX [Concomitant]
  9. PREDNISONE [Concomitant]
  10. COUMADIN [Concomitant]

REACTIONS (37)
  - ACUTE RESPIRATORY DISTRESS SYNDROME [None]
  - AFFECTIVE DISORDER [None]
  - APATHY [None]
  - BLOOD ALBUMIN DECREASED [None]
  - BLOOD CREATINE PHOSPHOKINASE MB INCREASED [None]
  - CARDIAC FAILURE CONGESTIVE [None]
  - CARDIOPULMONARY FAILURE [None]
  - CHOLESTASIS [None]
  - CLOSTRIDIAL INFECTION [None]
  - COLITIS ULCERATIVE [None]
  - CROHN'S DISEASE [None]
  - DEEP VEIN THROMBOSIS [None]
  - DEPRESSION [None]
  - DISSEMINATED INTRAVASCULAR COAGULATION [None]
  - EATING DISORDER [None]
  - ECCHYMOSIS [None]
  - ELECTROLYTE IMBALANCE [None]
  - GASTROINTESTINAL HAEMORRHAGE [None]
  - HYPOGLYCAEMIA [None]
  - HYPOTENSION [None]
  - INTERNATIONAL NORMALISED RATIO INCREASED [None]
  - MALNUTRITION [None]
  - MENTAL STATUS CHANGES [None]
  - METABOLIC ACIDOSIS [None]
  - NORMOCHROMIC NORMOCYTIC ANAEMIA [None]
  - PLATELET COUNT DECREASED [None]
  - PNEUMOMEDIASTINUM [None]
  - PNEUMONIA [None]
  - PROTEIN TOTAL DECREASED [None]
  - PROTHROMBIN TIME PROLONGED [None]
  - PULMONARY EMBOLISM [None]
  - PULMONARY OEDEMA [None]
  - RENAL FAILURE [None]
  - SEPTIC SHOCK [None]
  - STAPHYLOCOCCAL SEPSIS [None]
  - SUBCUTANEOUS EMPHYSEMA [None]
  - VENOUS STASIS [None]
